FAERS Safety Report 8456285-8 (Version None)
Quarter: 2012Q2

REPORT INFORMATION
  Report Type: 
  Country: None (occurrence: None)
  Receive Date: 20120621
  Receipt Date: 20120606
  Transmission Date: 20120825
  Serious: Yes (Hospitalization)
  Sender: FDA-Public Use
  Company Number: FR-ROCHE-1077461

PATIENT
  Sex: Female
  Weight: 73 kg

DRUGS (8)
  1. MABTHERA [Suspect]
     Indication: B-CELL LYMPHOMA
     Route: 042
     Dates: start: 20090303, end: 20090303
  2. PREDNISONE TAB [Suspect]
     Indication: B-CELL LYMPHOMA
     Dosage: LAST DOSE PRIOR TO SAE:07/MAR/2009
     Route: 042
     Dates: start: 20090303, end: 20090527
  3. CYTARABINE [Suspect]
     Indication: B-CELL LYMPHOMA
     Route: 042
     Dates: start: 20090305, end: 20090305
  4. CYCLOPHOSPHAMIDE [Suspect]
     Indication: B-CELL LYMPHOMA
     Dosage: LAST DOSE PRIOR TO SAE:06/MAR/2012
     Route: 042
     Dates: start: 20090304, end: 20090527
  5. LEUCOVORIN CALCIUM [Suspect]
     Indication: B-CELL LYMPHOMA
     Dosage: LAST DOSE PRIOR TO SAE:06/MAR/2009
     Route: 042
     Dates: start: 20090304, end: 20090527
  6. METHOTREXATE [Suspect]
     Indication: B-CELL LYMPHOMA
     Dosage: LAST DOSE PRIOR TO SAE:03/MAR/2009
     Route: 042
     Dates: start: 20090303, end: 20090527
  7. DOXORUBICIN HYDROCHLORIDE [Suspect]
     Indication: B-CELL LYMPHOMA
     Dosage: LAST DOSE PRIOR TO SAE:04/MAR/2012
     Route: 042
     Dates: start: 20090304, end: 20090527
  8. VINCRISTINE SULFATE [Suspect]
     Indication: B-CELL LYMPHOMA
     Dosage: LAST DOSE PRIOR TO SAE: 03/03/2009
     Route: 042
     Dates: start: 20090303, end: 20090527

REACTIONS (1)
  - RENAL FAILURE [None]
